FAERS Safety Report 6012402-0 (Version None)
Quarter: 2008Q4

REPORT INFORMATION
  Report Type: 
  Country: None (occurrence: None)
  Receive Date: 20081218
  Receipt Date: 20081008
  Transmission Date: 20090506
  Serious: No
  Sender: FDA-Public Use
  Company Number: US-ASTRAZENECA-2008UW21940

PATIENT
  Age: 48 Year
  Sex: Male

DRUGS (8)
  1. SYMBICORT [Suspect]
     Indication: RESPIRATORY TRACT INFECTION
     Dosage: 160/4.5 MCG PROFESSIONAL SAMPLE, ONE DOSE
     Route: 055
     Dates: start: 20081008
  2. COMBIVENT [Suspect]
     Route: 065
     Dates: start: 20081008
  3. SINGULAIR [Concomitant]
  4. LORATAN [Concomitant]
     Indication: PAIN
  5. MOBIC [Concomitant]
  6. VERAPAMIL [Concomitant]
  7. XANAX [Concomitant]
  8. SPIRIVA [Concomitant]

REACTIONS (1)
  - DRY MOUTH [None]
